FAERS Safety Report 13910734 (Version 1)
Quarter: 2017Q3

REPORT INFORMATION
  Report Type: Spontaneous
  Country: US (occurrence: None)
  Receive Date: 20170822
  Receipt Date: 20170822
  Transmission Date: 20171127
  Serious: Yes (Other)
  Sender: FDA-Public Use
  Company Number: None

PATIENT
  Age: 41 Year
  Sex: Female
  Weight: 69.5 kg

DRUGS (2)
  1. SUBOXONE [Suspect]
     Active Substance: BUPRENORPHINE HYDROCHLORIDE\NALOXONE HYDROCHLORIDE
     Indication: DRUG ABUSE
     Dosage: DATES OF USE - MANY YEARS?DOSE - 8-2 MG STRIPS 1/2
     Route: 060
  2. SUBOXONE [Suspect]
     Active Substance: BUPRENORPHINE HYDROCHLORIDE\NALOXONE HYDROCHLORIDE
     Indication: DRUG DEPENDENCE
     Dosage: DATES OF USE - MANY YEARS?DOSE - 8-2 MG STRIPS 1/2
     Route: 060

REACTIONS (4)
  - Erythema [None]
  - Musculoskeletal stiffness [None]
  - Peripheral swelling [None]
  - Urticaria [None]

NARRATIVE: CASE EVENT DATE: 20170428
